FAERS Safety Report 23298073 (Version 1)
Quarter: 2023Q4

REPORT INFORMATION
  Report Type: Spontaneous
  Country: US (occurrence: US)
  Receive Date: 20231214
  Receipt Date: 20231214
  Transmission Date: 20240109
  Serious: No
  Sender: FDA-Public Use
  Company Number: US-MYLANLABS-2023M1122783

PATIENT
  Age: 68 Year
  Sex: Female
  Weight: 63.05 kg

DRUGS (2)
  1. WIXELA INHUB [Suspect]
     Active Substance: FLUTICASONE PROPIONATE\SALMETEROL XINAFOATE
     Indication: Respiratory syncytial virus infection
     Dosage: 250/50 MICROGRAM BID (ONE PUFF TWICE A DAY)
     Route: 055
  2. DOXYCYCLINE [Concomitant]
     Active Substance: DOXYCYCLINE
     Indication: Antibiotic therapy
     Dosage: TWICE A DAY
     Route: 065

REACTIONS (4)
  - Cough [Unknown]
  - Drug ineffective [Unknown]
  - Device delivery system issue [Unknown]
  - Off label use [Unknown]

NARRATIVE: CASE EVENT DATE: 20231107
